FAERS Safety Report 12819539 (Version 1)
Quarter: 2016Q4

REPORT INFORMATION
  Report Type: Report from Study
  Country: US (occurrence: US)
  Receive Date: 20161006
  Receipt Date: 20161006
  Transmission Date: 20170207
  Serious: No
  Sender: FDA-Public Use
  Company Number: US-AMGEN-USASL2016009600

PATIENT
  Age: 69 Year
  Sex: Female

DRUGS (1)
  1. PROLIA [Suspect]
     Active Substance: DENOSUMAB
     Indication: OSTEOPOROSIS POSTMENOPAUSAL
     Dosage: UNK
     Route: 065
     Dates: start: 2015

REACTIONS (8)
  - Fatigue [Unknown]
  - Myopathy [Unknown]
  - Hypersensitivity [Unknown]
  - Toothache [Unknown]
  - Arthritis [Unknown]
  - Blood cortisol abnormal [Unknown]
  - Parathyroid disorder [Unknown]
  - Calcium metabolism disorder [Unknown]
